FAERS Safety Report 5372929-1 (Version None)
Quarter: 2007Q2

REPORT INFORMATION
  Report Type: 
  Country: None (occurrence: None)
  Receive Date: 20070626
  Receipt Date: 20070620
  Transmission Date: 20071010
  Serious: Yes (Hospitalization, Other)
  Sender: FDA-Public Use
  Company Number: 6034372

PATIENT
  Age: 49 Year
  Sex: Male

DRUGS (2)
  1. TRAMDURA TABLETTEN (50 MG, TABLET (TRAMADOL) [Suspect]
     Indication: DRUG USE FOR UNKNOWN INDICATION
     Dosage: ONE APPLICATION ONLY (50 MG, 10 IN 1 ONCE, ORAL
     Route: 048
  2. BROMAZEPAM (6 MG, TABLET) [Suspect]
     Indication: DRUG USE FOR UNKNOWN INDICATION
     Dosage: ONE APPLICATION ONLY (6 MG, 6 IN 1 ONCE) ORAL
     Route: 048

REACTIONS (3)
  - MULTIPLE DRUG OVERDOSE [None]
  - RESPIRATORY DEPRESSION [None]
  - SUICIDE ATTEMPT [None]
